FAERS Safety Report 5380940-X (Version None)
Quarter: 2007Q3

REPORT INFORMATION
  Report Type: 
  Country: None (occurrence: None)
  Receive Date: 20070702
  Receipt Date: 20060529
  Transmission Date: 20080115
  Serious: Yes (Hospitalization)
  Sender: FDA-Public Use
  Company Number: SPV1-2006-00017

PATIENT
  Age: 8 Year

DRUGS (2)
  1. PENTASA [Suspect]
     Indication: CROHN'S DISEASE
     Dosage: 2 G DAILY, ORAL
     Route: 048
     Dates: start: 20060415, end: 20060504
  2. ENTOCROT          (BUDESONIDE) [Suspect]
     Indication: CROHN'S DISEASE
     Dosage: 9 MG DAILY, ORAL
     Route: 048
     Dates: start: 20060415, end: 20060504

REACTIONS (1)
  - PANCREATITIS [None]
